FAERS Safety Report 9376953 (Version 2)
Quarter: 2014Q2

REPORT INFORMATION
  Report Type: Spontaneous
  Country: CN (occurrence: CN)
  Receive Date: 20130701
  Receipt Date: 20140514
  Transmission Date: 20141212
  Serious: Yes (Other)
  Sender: FDA-Public Use
  Company Number: PHHY2013CN067002

PATIENT
  Age: 91 Year
  Sex: Female

DRUGS (2)
  1. ACLASTA [Suspect]
     Indication: OSTEOPOROSIS POSTMENOPAUSAL
     Dosage: 5 MG, PER YEAR
     Route: 042
     Dates: start: 20130620, end: 20130620
  2. ALFACALCIDOL [Concomitant]

REACTIONS (3)
  - Convulsion [Unknown]
  - Tic [Unknown]
  - Hypocalcaemia [Unknown]
